FAERS Safety Report 21739752 (Version 1)
Quarter: 2022Q4

REPORT INFORMATION
  Report Type: Spontaneous
  Country: US (occurrence: None)
  Receive Date: 20221215
  Receipt Date: 20221215
  Transmission Date: 20230112
  Serious: Yes (Hospitalization)
  Sender: FDA-Public Use
  Company Number: None

PATIENT
  Age: 51 Year
  Sex: Female
  Weight: 65.25 kg

DRUGS (3)
  1. MYFEMBREE [Suspect]
     Active Substance: ESTRADIOL HEMIHYDRATE\NORETHINDRONE ACETATE\RELUGOLIX
     Indication: Uterine leiomyoma
     Dosage: OTHER QUANTITY : 1 TABLET(S);?
     Route: 048
     Dates: start: 20220901, end: 20221024
  2. TELMISARTAN [Concomitant]
     Active Substance: TELMISARTAN
  3. MAGNESIUM [Concomitant]
     Active Substance: MAGNESIUM

REACTIONS (4)
  - Abdominal pain upper [None]
  - Hypertension [None]
  - Liver function test abnormal [None]
  - Cholecystitis [None]

NARRATIVE: CASE EVENT DATE: 20221027
